FAERS Safety Report 6760432-3 (Version None)
Quarter: 2010Q2

REPORT INFORMATION
  Report Type: 
  Country: None (occurrence: None)
  Receive Date: 20100608
  Receipt Date: 20100525
  Transmission Date: 20101027
  Serious: Yes (Hospitalization, Other)
  Sender: FDA-Public Use
  Company Number: PHEH2006US08085

PATIENT
  Sex: Female
  Weight: 61.224 kg

DRUGS (14)
  1. AREDIA [Suspect]
     Dosage: UNK
  2. ZOMETA [Suspect]
     Dosage: 4 MG, QMO
  3. FEMARA [Concomitant]
     Dosage: 2.5 MG, UNK
  4. KLOR-CON [Concomitant]
     Dosage: 10 MEQ, UNK
  5. FUROSEMIDE [Concomitant]
     Dosage: 20 MG, UNK
  6. TAZTIA XT [Concomitant]
     Indication: BLOOD PRESSURE
     Dosage: 360 MG, UNK
  7. MECLIZINE [Concomitant]
     Dosage: 25 MG, UNK
  8. VITAMIN B-12 [Concomitant]
     Dosage: 100 MG, QD
  9. SINGULAIR [Concomitant]
     Indication: ASTHMA
     Dosage: 10 MG, QD
  10. ZOLOFT [Concomitant]
     Dosage: 50 MG, UNK
  11. OXYCODONE [Concomitant]
     Dosage: 5 MG, UNK
  12. MIRALAX [Concomitant]
     Indication: CONSTIPATION
     Dosage: UNK, QD
  13. ADVAIR DISKUS 100/50 [Concomitant]
     Indication: ASTHMA
     Dosage: 250/50, TWICE DAILY
  14. FASLODEX [Concomitant]
     Dosage: 250 MG, UNK

REACTIONS (29)
  - ANAEMIA [None]
  - ANXIETY [None]
  - ARRHYTHMIA [None]
  - BONE DEBRIDEMENT [None]
  - BONE DISORDER [None]
  - BONE OPERATION [None]
  - CARDIAC FAILURE CONGESTIVE [None]
  - CHEST PAIN [None]
  - DECREASED INTEREST [None]
  - DEHYDRATION [None]
  - DENTAL CARIES [None]
  - EATING DISORDER [None]
  - ENDODONTIC PROCEDURE [None]
  - ERYTHEMA [None]
  - EXOSTOSIS [None]
  - GENERAL PHYSICAL HEALTH DETERIORATION [None]
  - HYPERKALAEMIA [None]
  - HYPOAESTHESIA ORAL [None]
  - ORAL PAIN [None]
  - ORAL SURGERY [None]
  - OSTEONECROSIS OF JAW [None]
  - PAIN [None]
  - PAIN IN JAW [None]
  - RENAL FAILURE ACUTE [None]
  - RETINAL HAEMORRHAGE [None]
  - RETINAL VEIN OCCLUSION [None]
  - TACHYCARDIA [None]
  - VISUAL ACUITY REDUCED [None]
  - VOMITING [None]
